FAERS Safety Report 18270814 (Version 1)
Quarter: 2020Q3

REPORT INFORMATION
  Report Type: Report from Study
  Country: CZ (occurrence: CZ)
  Receive Date: 20200915
  Receipt Date: 20200915
  Transmission Date: 20201103
  Serious: Yes (Hospitalization)
  Sender: FDA-Public Use
  Company Number: CZ-TEVA-2020-CZ-1242337

PATIENT
  Age: 2 Year
  Sex: Male

DRUGS (2)
  1. VERAPAMIL [Suspect]
     Active Substance: VERAPAMIL HYDROCHLORIDE
     Dosage: VERAPAMIL 240MG ? 1 TABLET
     Route: 048
  2. PROPAFENONE. [Suspect]
     Active Substance: PROPAFENONE
     Dosage: 150 MG?1 TABLET
     Route: 065

REACTIONS (3)
  - Toxicity to various agents [Unknown]
  - Accidental exposure to product by child [Unknown]
  - Loss of consciousness [Unknown]
